FAERS Safety Report 9266101 (Version 2)
Quarter: 2013Q2

REPORT INFORMATION
  Report Type: Spontaneous
  Country: US (occurrence: US)
  Receive Date: 20130501
  Receipt Date: 20130517
  Transmission Date: 20140414
  Serious: Yes (Disabling, Other)
  Sender: FDA-Public Use
  Company Number: US-009507513-1304USA015197

PATIENT
  Age: 31 Year
  Sex: Female
  Weight: 72.56 kg

DRUGS (5)
  1. SAPHRIS [Suspect]
     Indication: SCHIZOPHRENIA
     Dosage: 5 MG, BID
     Route: 060
     Dates: start: 20130308, end: 20130319
  2. SAPHRIS [Suspect]
     Indication: PSYCHOTIC DISORDER
     Dosage: 10 MG, BID
     Route: 060
     Dates: start: 20130320, end: 20130412
  3. OLANZAPINE [Suspect]
     Indication: PSYCHOTIC DISORDER
     Dosage: 10 MG, HS
  4. OLANZAPINE [Suspect]
     Dosage: 20 MG, HS
  5. OLANZAPINE [Suspect]
     Dosage: 2 MG, HS
     Dates: end: 2013

REACTIONS (5)
  - Catatonia [Recovered/Resolved]
  - Hallucination, auditory [Unknown]
  - Thinking abnormal [Unknown]
  - Aggression [Unknown]
  - Adverse event [Unknown]
